FAERS Safety Report 13518115 (Version 1)
Quarter: 2017Q2

REPORT INFORMATION
  Report Type: Spontaneous
  Country: US (occurrence: US)
  Receive Date: 20170505
  Receipt Date: 20170505
  Transmission Date: 20170830
  Serious: No
  Sender: FDA-Public Use
  Company Number: US-GLAXOSMITHKLINE-US2017064023

PATIENT
  Sex: Female

DRUGS (7)
  1. BACTROBAN [Suspect]
     Active Substance: MUPIROCIN\MUPIROCIN CALCIUM
     Indication: SINUSITIS
     Dosage: UNK UNK, BID
  2. COQ10 [Concomitant]
     Active Substance: UBIDECARENONE
  3. SYMBICORT [Concomitant]
     Active Substance: BUDESONIDE\FORMOTEROL FUMARATE DIHYDRATE
  4. SPIRIVA [Concomitant]
     Active Substance: TIOTROPIUM BROMIDE MONOHYDRATE
  5. OXYCODONE [Concomitant]
     Active Substance: OXYCODONE
  6. OXYMETAZOLINE HYDROCHLORIDE. [Suspect]
     Active Substance: OXYMETAZOLINE HYDROCHLORIDE
     Indication: PRODUCT USED FOR UNKNOWN INDICATION
     Dosage: UNK
  7. FISH OIL [Concomitant]
     Active Substance: FISH OIL

REACTIONS (5)
  - Oropharyngeal pain [Not Recovered/Not Resolved]
  - Drug interaction [Unknown]
  - Product use in unapproved indication [Unknown]
  - Nasal discomfort [Not Recovered/Not Resolved]
  - Epistaxis [Unknown]
